FAERS Safety Report 10157456 (Version 1)
Quarter: 2014Q2

REPORT INFORMATION
  Report Type: Spontaneous
  Country: US (occurrence: US)
  Receive Date: 20140507
  Receipt Date: 20140507
  Transmission Date: 20141212
  Serious: Yes (Other)
  Sender: FDA-Public Use
  Company Number: US-PFIZER INC-2014120545

PATIENT
  Age: 60 Year
  Sex: Female
  Weight: 54.42 kg

DRUGS (3)
  1. ZYVOX [Suspect]
     Indication: OSTEOMYELITIS
     Dosage: 600 MG, 2X/DAY
  2. POLYTRIM [Concomitant]
     Dosage: UNK
  3. TOLECTIN [Concomitant]
     Dosage: UNK

REACTIONS (5)
  - Drug ineffective [Unknown]
  - Staphylococcal infection [Unknown]
  - Skin infection [Unknown]
  - Blood test abnormal [Unknown]
  - General physical condition abnormal [Unknown]
